FAERS Safety Report 6037631-1 (Version None)
Quarter: 2009Q1

REPORT INFORMATION
  Report Type: 
  Country: None (occurrence: None)
  Receive Date: 20090114
  Receipt Date: 20090112
  Transmission Date: 20090719
  Serious: No
  Sender: FDA-Public Use
  Company Number: US-B.I. PHARMACEUTICALS,INC./RIDGEFIELD-2009-BP-00322BP

PATIENT
  Age: 85 Year
  Sex: Male

DRUGS (2)
  1. FLOMAX [Suspect]
     Indication: BENIGN PROSTATIC HYPERPLASIA
     Dosage: .8MG
     Route: 048
     Dates: start: 20081101
  2. PARKINSON MED [Concomitant]

REACTIONS (4)
  - INSOMNIA [None]
  - POLLAKIURIA [None]
  - RHINORRHOEA [None]
  - SALIVARY HYPERSECRETION [None]
